FAERS Safety Report 5762974-6 (Version None)
Quarter: 2008Q2

REPORT INFORMATION
  Report Type: 
  Country: None (occurrence: None)
  Receive Date: 20080609
  Receipt Date: 20080530
  Transmission Date: 20081010
  Serious: Yes (Disabling)
  Sender: FDA-Public Use
  Company Number: JP-PFIZER INC-2008028399

PATIENT
  Sex: Female

DRUGS (2)
  1. XALATAN [Suspect]
     Route: 031
  2. SANPILO [Suspect]
     Route: 031

REACTIONS (2)
  - CONJUNCTIVAL HYPERAEMIA [None]
  - INTRAOCULAR PRESSURE INCREASED [None]
